FAERS Safety Report 4815891-X (Version None)
Quarter: 2005Q4

REPORT INFORMATION
  Report Type: 
  Country: None (occurrence: None)
  Receive Date: 20051026
  Receipt Date: 20051017
  Transmission Date: 20060501
  Serious: Yes (Disabling, Other)
  Sender: FDA-Public Use
  Company Number: 2005120786

PATIENT
  Age: 52 Year
  Sex: Female

DRUGS (8)
  1. ZOLOFT [Suspect]
     Indication: DEPRESSION
     Dosage: 1 IN1 D ORAL
     Route: 048
     Dates: start: 20000101
  2. XANAX [Suspect]
     Indication: ANXIETY
     Dosage: 2 IN 1 D ORAL
     Route: 048
     Dates: start: 19980101, end: 19980101
  3. PAXIL [Concomitant]
  4. HYDROXYZINE [Concomitant]
  5. SEROQUEL [Concomitant]
  6. WELLBUTRIN [Suspect]
     Indication: ANXIETY
  7. HYDROXYZINE PAMOATE [Concomitant]
  8. ALBUTEROL [Concomitant]

REACTIONS (9)
  - CONDITION AGGRAVATED [None]
  - DEPRESSION [None]
  - DRUG INEFFECTIVE [None]
  - FEAR [None]
  - NERVOUSNESS [None]
  - PSYCHOTIC DISORDER [None]
  - SCHIZOPHRENIA, PARANOID TYPE [None]
  - TREMOR [None]
  - WEIGHT INCREASED [None]
